FAERS Safety Report 19364220 (Version 1)
Quarter: 2021Q2

REPORT INFORMATION
  Report Type: Spontaneous
  Country: US (occurrence: US)
  Receive Date: 20210602
  Receipt Date: 20210602
  Transmission Date: 20210717
  Serious: Yes (Other)
  Sender: FDA-Public Use
  Company Number: US-PFIZER INC-2021575774

PATIENT
  Age: 74 Year
  Sex: Female

DRUGS (15)
  1. AMINOPHYLLINE. [Suspect]
     Active Substance: AMINOPHYLLINE
     Indication: DYSPNOEA
     Dosage: 25 MG
     Dates: start: 20210303, end: 20210303
  2. LEXISCAN [Suspect]
     Active Substance: REGADENOSON
     Indication: MYOCARDIAL ISCHAEMIA
     Dosage: 0.4MG/5 ML (MILLILITER) ADMINISTERED FOR12 SECONDS
     Route: 042
     Dates: start: 20210303, end: 20210303
  3. ATORVASTATIN [Concomitant]
     Active Substance: ATORVASTATIN
  4. ASA [Concomitant]
     Active Substance: ASPIRIN
  5. VORTIOXETINE HYDROBROMIDE [Concomitant]
     Active Substance: VORTIOXETINE HYDROBROMIDE
  6. ISOSORBIDE MONONITRATE. [Concomitant]
     Active Substance: ISOSORBIDE MONONITRATE
  7. LOSARTAN. [Concomitant]
     Active Substance: LOSARTAN
  8. AMINOPHYLLINE. [Suspect]
     Active Substance: AMINOPHYLLINE
     Indication: NAUSEA
  9. PLAVIX [Concomitant]
     Active Substance: CLOPIDOGREL BISULFATE
  10. IRON [Concomitant]
     Active Substance: IRON
  11. BELSOMRA [Concomitant]
     Active Substance: SUVOREXANT
  12. KLOR?CON [Concomitant]
     Active Substance: POTASSIUM CHLORIDE
  13. PANTOPRAZOLE [Concomitant]
     Active Substance: PANTOPRAZOLE
  14. NIFEDIPINE. [Concomitant]
     Active Substance: NIFEDIPINE
  15. HUMULIN 70/30 [Concomitant]
     Active Substance: INSULIN HUMAN

REACTIONS (5)
  - Syncope [Recovered/Resolved]
  - Hypokinesia [Recovered/Resolved]
  - Altered state of consciousness [Recovered/Resolved]
  - Fall [Recovered/Resolved]
  - Speech disorder [Recovered/Resolved]
